FAERS Safety Report 9800260 (Version 1)
Quarter: 2014Q1

REPORT INFORMATION
  Report Type: Spontaneous
  Country: US (occurrence: US)
  Receive Date: 20140106
  Receipt Date: 20140106
  Transmission Date: 20141002
  Serious: Yes (Death, Other)
  Sender: FDA-Public Use
  Company Number: US-GILEAD-2014-0091366

PATIENT
  Age: 66 Year
  Sex: Female

DRUGS (3)
  1. LETAIRIS [Suspect]
     Indication: PULMONARY HYPERTENSION
     Route: 048
     Dates: start: 20110825, end: 20140103
  2. TYVASO [Concomitant]
     Indication: PULMONARY HYPERTENSION
     Dates: start: 20131202, end: 20140102
  3. REVATIO [Concomitant]
     Indication: PULMONARY HYPERTENSION
     Dates: start: 20130611, end: 20140102

REACTIONS (1)
  - Death [Fatal]
